FAERS Safety Report 12528684 (Version 1)
Quarter: 2016Q3

REPORT INFORMATION
  Report Type: Report from Study
  Country: IT (occurrence: IT)
  Receive Date: 20160705
  Receipt Date: 20160705
  Transmission Date: 20161109
  Serious: Yes (Other)
  Sender: FDA-Public Use
  Company Number: IT-BAYER-2016-129888

PATIENT
  Age: 40 Year
  Sex: Female

DRUGS (1)
  1. QLAIRA ORAL CONTRACEPTIVE RESEARCH 2009 [Suspect]
     Active Substance: DIENOGEST\ESTRADIOL VALERATE
     Indication: PRODUCT USED FOR UNKNOWN INDICATION
     Dosage: UNK
     Route: 048

REACTIONS (1)
  - Cerebral thrombosis [None]

NARRATIVE: CASE EVENT DATE: 2012
